FAERS Safety Report 19058423 (Version 1)
Quarter: 2021Q1

REPORT INFORMATION
  Report Type: Spontaneous
  Country: US (occurrence: US)
  Receive Date: 20210324
  Receipt Date: 20210324
  Transmission Date: 20210420
  Serious: Yes (Life-Threatening, Other)
  Sender: FDA-Public Use
  Company Number: US-SUN PHARMACEUTICAL INDUSTRIES LTD-2021R1-287421

PATIENT
  Age: 18 Year
  Sex: Female

DRUGS (8)
  1. FONDAPARINUX [Suspect]
     Active Substance: FONDAPARINUX
     Indication: ANTIPHOSPHOLIPID SYNDROME
     Dosage: UNK
     Route: 065
  2. RIVAROXABAN [Suspect]
     Active Substance: RIVAROXABAN
     Indication: ANTIPHOSPHOLIPID SYNDROME
     Dosage: UNK
     Route: 065
  3. ENOXAPARIN SODIUM. [Suspect]
     Active Substance: ENOXAPARIN SODIUM
     Indication: ANTIPHOSPHOLIPID SYNDROME
     Dosage: UNK
     Route: 065
  4. HYDROXYCHLOROQUINE [Suspect]
     Active Substance: HYDROXYCHLOROQUINE
     Indication: ANTIPHOSPHOLIPID SYNDROME
     Dosage: UNK
     Route: 065
  5. ASPIRIN. [Suspect]
     Active Substance: ASPIRIN
     Indication: ANTIPHOSPHOLIPID SYNDROME
     Dosage: UNK
     Route: 065
  6. CLOPIDOGREL [Suspect]
     Active Substance: CLOPIDOGREL BISULFATE
     Indication: ANTIPHOSPHOLIPID SYNDROME
     Dosage: UNK
     Route: 065
  7. WARFARIN [Suspect]
     Active Substance: WARFARIN
     Indication: ANTIPHOSPHOLIPID SYNDROME
     Dosage: UNK
     Route: 065
  8. APIXABAN [Suspect]
     Active Substance: APIXABAN
     Indication: ANTIPHOSPHOLIPID SYNDROME
     Dosage: UNK
     Route: 065

REACTIONS (3)
  - Hepatic infarction [Unknown]
  - Pulmonary embolism [Unknown]
  - Disease recurrence [Unknown]
